FAERS Safety Report 6964494-X (Version None)
Quarter: 2010Q3

REPORT INFORMATION
  Report Type: 
  Country: None (occurrence: None)
  Receive Date: 20100903
  Receipt Date: 20100825
  Transmission Date: 20110219
  Serious: Yes (Other)
  Sender: FDA-Public Use
  Company Number: US-PFIZER INC-2010107891

PATIENT
  Age: 58 Year
  Sex: Male
  Weight: 72.562 kg

DRUGS (7)
  1. VIAGRA [Suspect]
     Indication: ERECTILE DYSFUNCTION
     Dosage: 25 MG, AS NEEDED
     Route: 048
     Dates: start: 20000101
  2. VIAGRA [Suspect]
     Dosage: 50 MG, AS NEEDED
     Route: 048
  3. VIAGRA [Suspect]
     Dosage: 100 MG, AS NEEDED
     Route: 048
  4. PAXIL [Concomitant]
     Indication: DEPRESSION
     Dosage: UNK
  5. PAXIL [Concomitant]
     Indication: AFFECTIVE DISORDER
  6. ALPRAZOLAM [Concomitant]
     Dosage: UNK
  7. DIAZEPAM [Concomitant]
     Dosage: UNK

REACTIONS (2)
  - MUSCLE DISORDER [None]
  - MUSCULAR WEAKNESS [None]
